FAERS Safety Report 23782634 (Version 10)
Quarter: 2024Q2

REPORT INFORMATION
  Report Type: Spontaneous
  Country: GB (occurrence: GB)
  Receive Date: 20240425
  Receipt Date: 20240617
  Transmission Date: 20240716
  Serious: Yes (Hospitalization, Other)
  Sender: FDA-Public Use
  Company Number: GB-TAKEDA-2024TUS034780

PATIENT
  Age: 77 Year
  Sex: Female

DRUGS (13)
  1. CANDESARTAN [Suspect]
     Active Substance: CANDESARTAN
     Indication: Anaplastic large cell lymphoma T- and null-cell types
     Dosage: UNK, CANDESARTAN TAKEDA
     Route: 065
  2. DAPAGLIFLOZIN [Concomitant]
     Active Substance: DAPAGLIFLOZIN
     Dosage: 25 MILLIGRAM/SQ. METER
     Route: 065
  3. DAPAGLIFLOZIN [Concomitant]
     Active Substance: DAPAGLIFLOZIN
     Dosage: UNK
     Route: 065
  4. PREDNISOLONE [Suspect]
     Active Substance: PREDNISOLONE
     Indication: Anaplastic large cell lymphoma T- and null-cell types
     Dosage: UNK
     Route: 065
  5. DOXORUBICIN [Suspect]
     Active Substance: DOXORUBICIN
     Indication: Anaplastic large cell lymphoma T- and null-cell types
     Dosage: 25 MILLIGRAM/SQ. METER
     Route: 065
  6. BRENTUXIMAB VEDOTIN [Suspect]
     Active Substance: BRENTUXIMAB VEDOTIN
     Indication: Anaplastic large cell lymphoma T- and null-cell types
     Route: 065
  7. FUROSEMIDE [Suspect]
     Active Substance: FUROSEMIDE
     Indication: Product used for unknown indication
     Dosage: UNK
     Route: 065
  8. CYCLOPHOSPHAMIDE [Suspect]
     Active Substance: CYCLOPHOSPHAMIDE
     Indication: Anaplastic large cell lymphoma T- and null-cell types
     Dosage: 400 MILLIGRAM/SQ. METER
     Route: 065
  9. RAMIPRIL [Suspect]
     Active Substance: RAMIPRIL
     Indication: Product used for unknown indication
     Dosage: UNK
     Route: 065
  10. PREDNISONE [Suspect]
     Active Substance: PREDNISONE
     Indication: Anaplastic large cell lymphoma T- and null-cell types
     Dosage: UNK; ;
     Route: 065
  11. ALDOSTERONE [Concomitant]
     Active Substance: ALDOSTERONE
     Dosage: UNK
     Route: 065
  12. ALDOSTERONE [Concomitant]
     Active Substance: ALDOSTERONE
     Dosage: 400 MILLIGRAM/SQ. METER
     Route: 065
  13. ALDOSTERONE [Concomitant]
     Active Substance: ALDOSTERONE
     Dosage: UNK

REACTIONS (9)
  - Cardiac failure [Unknown]
  - Oedema peripheral [Recovering/Resolving]
  - Cellulitis [Recovered/Resolved]
  - C-reactive protein abnormal [Unknown]
  - Dyspnoea exertional [Unknown]
  - Confusional state [Recovered/Resolved]
  - Off label use [Unknown]
  - Oedema peripheral [Unknown]
  - Dyspnoea [Unknown]
